FAERS Safety Report 7055261-X (Version None)
Quarter: 2010Q4

REPORT INFORMATION
  Report Type: 
  Country: None (occurrence: None)
  Receive Date: 20101020
  Receipt Date: 20101020
  Transmission Date: 20110411
  Serious: Yes (Life-Threatening)
  Sender: FDA-Public Use
  Company Number: None

PATIENT
  Age: 77 Year
  Sex: Female
  Weight: 68.0396 kg

DRUGS (1)
  1. FLECAINIDE ACETATE [Suspect]
     Indication: ATRIAL FIBRILLATION
     Dosage: 50 MG 1 TAB 2X'S A DAY
     Dates: start: 20090701, end: 20100512

REACTIONS (7)
  - ANAL PRURITUS [None]
  - CONSTIPATION [None]
  - GASTROINTESTINAL DISORDER [None]
  - HAEMORRHOIDS [None]
  - LIVER INJURY [None]
  - THROMBOSIS [None]
  - VULVOVAGINAL PRURITUS [None]
